FAERS Safety Report 7092967-0 (Version None)
Quarter: 2010Q4

REPORT INFORMATION
  Report Type: 
  Country: None (occurrence: None)
  Receive Date: 20101110
  Receipt Date: 20080804
  Transmission Date: 20110411
  Serious: No
  Sender: FDA-Public Use
  Company Number: US-KINGPHARMUSA00001-K200800933

PATIENT
  Sex: Female
  Weight: 72.562 kg

DRUGS (1)
  1. LEVOXYL [Suspect]
     Indication: BLOOD THYROID STIMULATING HORMONE INCREASED
     Dosage: 125 MCG, QD
     Route: 048
     Dates: start: 20080615

REACTIONS (3)
  - ACTIVITIES OF DAILY LIVING IMPAIRED [None]
  - MALAISE [None]
  - NAUSEA [None]
